FAERS Safety Report 7435455-1 (Version None)
Quarter: 2011Q2

REPORT INFORMATION
  Report Type: 
  Country: None (occurrence: None)
  Receive Date: 20110425
  Receipt Date: 20110413
  Transmission Date: 20111010
  Serious: Yes (Other)
  Sender: FDA-Public Use
  Company Number: PHHY2010CA12982

PATIENT
  Sex: Male

DRUGS (1)
  1. SANDOSTATIN LAR [Suspect]
     Indication: CARCINOID TUMOUR
     Dosage: 60 MG, BIW
     Route: 030
     Dates: start: 20060626

REACTIONS (7)
  - EYE DISORDER [None]
  - NERVE INJURY [None]
  - DIARRHOEA [None]
  - PIGMENTATION DISORDER [None]
  - ERYTHEMA [None]
  - PALPITATIONS [None]
  - NERVE COMPRESSION [None]
